FAERS Safety Report 24981281 (Version 1)
Quarter: 2025Q1

REPORT INFORMATION
  Report Type: Spontaneous
  Country: US (occurrence: None)
  Receive Date: 20250217
  Receipt Date: 20250217
  Transmission Date: 20250409
  Serious: Yes (Hospitalization)
  Sender: FDA-CTU
  Company Number: None

PATIENT
  Sex: Female

DRUGS (4)
  1. OPSUMIT [Suspect]
     Active Substance: MACITENTAN
     Indication: Pulmonary arterial hypertension
     Dosage: FREQUENCY : DAILY;?
     Route: 048
     Dates: start: 202012
  2. REMODULIN [Suspect]
     Active Substance: TREPROSTINIL
  3. UPTRAVI [Suspect]
     Active Substance: SELEXIPAG
  4. ORENITRAM [Suspect]
     Active Substance: TREPROSTINIL

REACTIONS (1)
  - Diverticulitis [None]
